FAERS Safety Report 13328835 (Version 1)
Quarter: 2017Q1

REPORT INFORMATION
  Report Type: Spontaneous
  Country: US (occurrence: US)
  Receive Date: 20170312
  Receipt Date: 20170312
  Transmission Date: 20170428
  Serious: Yes (Other)
  Sender: FDA-Public Use
  Company Number: None

PATIENT
  Age: 36 Year
  Sex: Female
  Weight: 67.5 kg

DRUGS (1)
  1. FOUGERA CLOBETA [Suspect]
     Active Substance: CLOBETASOL PROPIONATE
     Indication: FUNGAL INFECTION
     Dosage: ?          OTHER STRENGTH:USP UNITS PER GRAM;QUANTITY:1 LAYER OF CREAM;?
     Route: 061
     Dates: start: 20170309, end: 20170310

REACTIONS (5)
  - Application site erythema [None]
  - Application site pruritus [None]
  - Wound secretion [None]
  - Application site pain [None]
  - Application site swelling [None]

NARRATIVE: CASE EVENT DATE: 20170310
